FAERS Safety Report 16447140 (Version 1)
Quarter: 2019Q2

REPORT INFORMATION
  Report Type: Spontaneous
  Country: GR (occurrence: GR)
  Receive Date: 20190618
  Receipt Date: 20190618
  Transmission Date: 20190711
  Serious: Yes (Hospitalization)
  Sender: FDA-Public Use
  Company Number: PHHY2019GR033500

PATIENT
  Age: 60 Year
  Sex: Female
  Weight: 84 kg

DRUGS (7)
  1. DEXATON [Concomitant]
     Indication: PREMEDICATION
     Dosage: 2 DF, CYCLIC (ONCE IN EVERY 3 WEEKS)
     Route: 042
     Dates: start: 20181119, end: 20190124
  2. ZANTAC [Concomitant]
     Active Substance: RANITIDINE HYDROCHLORIDE
     Indication: PREMEDICATION
     Dosage: 1 DF, CYCLIC (ONCE EVERY 3 WEEKS)
     Route: 042
     Dates: start: 20181119, end: 20190124
  3. AVELUMAB [Suspect]
     Active Substance: AVELUMAB
     Indication: SMALL CELL LUNG CANCER
     Dosage: 800 MG, CYCLIC (ONCE IN 14 DAYS)
     Route: 042
     Dates: start: 20190102, end: 20190102
  4. FENISTIL [Concomitant]
     Active Substance: DIMETHINDENE
     Indication: PREMEDICATION
     Dosage: 1 DF, CYCLIC (ONCE EVERY 3 WEEKS)
     Route: 042
     Dates: start: 20181119, end: 20190124
  5. CARBOPLATIN. [Suspect]
     Active Substance: CARBOPLATIN
     Indication: SMALL CELL LUNG CANCER
     Dosage: 600 MG,CYCLIC (ONCE IN 21 DAYS)
     Route: 042
     Dates: start: 20181119, end: 20190123
  6. ALOXI [Concomitant]
     Active Substance: PALONOSETRON HYDROCHLORIDE
     Indication: PREMEDICATION
     Dosage: 1 DF, CYCLIC (ONCE EVERY 3 WEEKS)
     Route: 042
     Dates: start: 20181119, end: 20190124
  7. ETOPOSIDE. [Suspect]
     Active Substance: ETOPOSIDE
     Indication: SMALL CELL LUNG CANCER
     Dosage: 200 MG, CYCLIC (ONCE IN 21 DAYS)
     Route: 042
     Dates: start: 20181119, end: 20190124

REACTIONS (1)
  - Embolism [Recovered/Resolved]

NARRATIVE: CASE EVENT DATE: 20190124
